FAERS Safety Report 15308028 (Version 1)
Quarter: 2018Q3

REPORT INFORMATION
  Report Type: Spontaneous
  Country: US (occurrence: US)
  Receive Date: 20180822
  Receipt Date: 20180822
  Transmission Date: 20181010
  Serious: Yes (Hospitalization, Other)
  Sender: FDA-Public Use
  Company Number: US-SHIRE-US201831912

PATIENT
  Sex: Male

DRUGS (3)
  1. GATTEX [Suspect]
     Active Substance: TEDUGLUTIDE\WATER
     Indication: PRODUCT USED FOR UNKNOWN INDICATION
     Dosage: 13 ML, 1X/DAY:QD
     Route: 065
     Dates: start: 20180703
  2. TPN [Concomitant]
     Active Substance: AMINO ACIDS\DEXTROSE\ELECTROLYTES NOS\SOYBEAN OIL
     Indication: PRODUCT USED FOR UNKNOWN INDICATION
  3. GATTEX [Suspect]
     Active Substance: TEDUGLUTIDE\WATER
     Indication: OFF LABEL USE

REACTIONS (2)
  - Device related infection [Recovered/Resolved]
  - Off label use [Unknown]
